FAERS Safety Report 7920019-3 (Version None)
Quarter: 2011Q4

REPORT INFORMATION
  Report Type: 
  Country: None (occurrence: None)
  Receive Date: 20111117
  Receipt Date: 20111107
  Transmission Date: 20120403
  Serious: Yes (Hospitalization)
  Sender: FDA-Public Use
  Company Number: IT-BRISTOL-MYERS SQUIBB COMPANY-16217408

PATIENT
  Age: 50 Year
  Sex: Male

DRUGS (2)
  1. PACLITAXEL [Concomitant]
     Indication: LUNG ADENOCARCINOMA
  2. CARBOPLATIN [Suspect]
     Indication: LUNG ADENOCARCINOMA

REACTIONS (1)
  - KOUNIS SYNDROME [None]
